FAERS Safety Report 6204365-X (Version None)
Quarter: 2009Q2

REPORT INFORMATION
  Report Type: 
  Country: None (occurrence: None)
  Receive Date: 20090527
  Receipt Date: 20090516
  Transmission Date: 20091009
  Serious: Yes (Other)
  Sender: FDA-Public Use
  Company Number: FR-ELI_LILLY_AND_COMPANY-FR200905003721

PATIENT
  Sex: Male

DRUGS (5)
  1. CIALIS [Suspect]
     Route: 048
  2. MONOTILDIEM [Concomitant]
  3. PLAVIX [Concomitant]
  4. TAHOR [Concomitant]
  5. PHYSIOTENS [Concomitant]

REACTIONS (3)
  - FALL [None]
  - PARALYSIS [None]
  - SYNCOPE [None]
